FAERS Safety Report 8954871 (Version 1)
Quarter: 2012Q4

REPORT INFORMATION
  Report Type: 
  Country: FI (occurrence: FI)
  Receive Date: 20121210
  Receipt Date: 20121210
  Transmission Date: 20130627
  Serious: Yes (Hospitalization)
  Sender: FDA-Public Use
  Company Number: FI-ELI_LILLY_AND_COMPANY-FI201211009050

PATIENT
  Age: 68 Year
  Sex: Female

DRUGS (8)
  1. FORSTEO [Suspect]
     Indication: OSTEOPOROSIS
     Dosage: 20 ug, qd
     Route: 058
     Dates: start: 20101012, end: 20120930
  2. OXYCONTIN [Concomitant]
     Dosage: UNK, unknown
     Route: 065
  3. ALENDRONATE [Concomitant]
     Indication: OSTEOPOROSIS
     Dosage: UNK, unknown
     Route: 065
  4. CALCIUM D [Concomitant]
     Indication: MEDICAL DIET
     Dosage: UNK, unknown
     Route: 065
  5. OXYNORM [Concomitant]
     Indication: PAIN
     Dosage: UNK, unknown
     Route: 065
  6. NORSPAN [Concomitant]
     Indication: PAIN
     Dosage: UNK, unknown
     Route: 065
  7. LYRICA [Concomitant]
     Dosage: UNK, unknown
     Route: 065
  8. CELEBRA [Concomitant]
     Indication: INFLAMMATORY PAIN
     Dosage: UNK, unknown
     Route: 065

REACTIONS (4)
  - Vomiting [Not Recovered/Not Resolved]
  - Fall [Not Recovered/Not Resolved]
  - Hypertension [Not Recovered/Not Resolved]
  - Dizziness [Not Recovered/Not Resolved]
